FAERS Safety Report 24729855 (Version 2)
Quarter: 2025Q4

REPORT INFORMATION
  Report Type: Spontaneous
  Country: CA (occurrence: CA)
  Receive Date: 20241213
  Receipt Date: 20251114
  Transmission Date: 20260118
  Serious: Yes (Death, Hospitalization, Other)
  Sender: ROCHE
  Company Number: CA-ROCHE-10000152972

PATIENT
  Sex: Female

DRUGS (1)
  1. ENSPRYNG [Suspect]
     Active Substance: SATRALIZUMAB-MWGE
     Indication: Neuromyelitis optica spectrum disorder
     Route: 065

REACTIONS (3)
  - Pneumonia [Unknown]
  - Breast cancer stage IV [Fatal]
  - Neoplasm malignant [Unknown]
